FAERS Safety Report 12452589 (Version 1)
Quarter: 2016Q2

REPORT INFORMATION
  Report Type: Spontaneous
  Country: CZ (occurrence: CZ)
  Receive Date: 20160609
  Receipt Date: 20160609
  Transmission Date: 20160815
  Serious: Yes (Other)
  Sender: FDA-Public Use
  Company Number: CZ-TEVA-665885ISR

PATIENT
  Sex: Female

DRUGS (1)
  1. OXALIPLATIN TEVA [Suspect]
     Active Substance: OXALIPLATIN
     Route: 042

REACTIONS (3)
  - Condition aggravated [Recovered/Resolved]
  - Enuresis [Recovered/Resolved]
  - Infusion related reaction [Recovered/Resolved]

NARRATIVE: CASE EVENT DATE: 201604
